FAERS Safety Report 12109018 (Version 1)
Quarter: 2016Q1

REPORT INFORMATION
  Report Type: Spontaneous
  Country: US (occurrence: None)
  Receive Date: 20160222
  Receipt Date: 20160222
  Transmission Date: 20160526
  Serious: Yes (Life-Threatening)
  Sender: FDA-Public Use
  Company Number: None

PATIENT
  Age: 72 Year
  Sex: Male

DRUGS (3)
  1. KEYTRUDA [Suspect]
     Active Substance: PEMBROLIZUMAB
  2. INTERFERON ALFA 2B [Suspect]
     Active Substance: INTERFERON ALFA-2B
     Indication: MALIGNANT MELANOMA
  3. YERVOY [Suspect]
     Active Substance: IPILIMUMAB

REACTIONS (4)
  - Drug ineffective [None]
  - Neoplasm progression [None]
  - Malignant melanoma [None]
  - Therapy change [None]
